FAERS Safety Report 10482368 (Version 2)
Quarter: 2014Q4

REPORT INFORMATION
  Report Type: Spontaneous
  Country: US (occurrence: US)
  Receive Date: 20140929
  Receipt Date: 20141205
  Transmission Date: 20150528
  Serious: Yes (Hospitalization, Other)
  Sender: FDA-Public Use
  Company Number: US-BAYER-2014-142654

PATIENT
  Age: 28 Year
  Sex: Female
  Weight: 72.56 kg

DRUGS (1)
  1. MIRENA [Suspect]
     Active Substance: LEVONORGESTREL
     Indication: CONTRACEPTION
     Dosage: 20 MCG/24HR, CONT
     Route: 015
     Dates: start: 20120906, end: 20121017

REACTIONS (10)
  - Emotional distress [None]
  - Pain [None]
  - Psychological trauma [None]
  - Genital haemorrhage [None]
  - Depression [None]
  - Uterine perforation [None]
  - Anxiety [None]
  - Anhedonia [None]
  - Device defective [None]
  - Injury [None]

NARRATIVE: CASE EVENT DATE: 201209
